FAERS Safety Report 13019116 (Version 1)
Quarter: 2016Q4

REPORT INFORMATION
  Report Type: Spontaneous
  Country: US (occurrence: US)
  Receive Date: 20161212
  Receipt Date: 20161212
  Transmission Date: 20170207
  Serious: Yes (Death, Other)
  Sender: FDA-Public Use
  Company Number: GXBR2016US003521

PATIENT
  Age: 26 Year
  Sex: Female

DRUGS (1)
  1. METHOTREXATE SODIUM. [Suspect]
     Active Substance: METHOTREXATE SODIUM
     Indication: ECTOPIC PREGNANCY TERMINATION
     Dosage: UNK MG, UNK
     Route: 065
     Dates: start: 20100828, end: 20100828

REACTIONS (13)
  - Blood disorder [Unknown]
  - Gait disturbance [Unknown]
  - Dermatillomania [Unknown]
  - Haemoptysis [Unknown]
  - Skin discolouration [Unknown]
  - Product use issue [Unknown]
  - Limb discomfort [Unknown]
  - Death [Fatal]
  - Decreased appetite [Unknown]
  - Maternal exposure during pregnancy [Unknown]
  - Peripheral swelling [Unknown]
  - Dyspnoea [Unknown]
  - Haemorrhage [Unknown]

NARRATIVE: CASE EVENT DATE: 20100828
